FAERS Safety Report 10444553 (Version 1)
Quarter: 2014Q3

REPORT INFORMATION
  Report Type: Spontaneous
  Country: US (occurrence: None)
  Receive Date: 20140909
  Receipt Date: 20140909
  Transmission Date: 20150326
  Serious: Yes (Life-Threatening, Disabling, Other)
  Sender: FDA-Public Use
  Company Number: None

PATIENT
  Age: 41 Year
  Sex: Female

DRUGS (1)
  1. MIRAPEX [Suspect]
     Active Substance: PRAMIPEXOLE DIHYDROCHLORIDE
     Indication: RESTLESS LEGS SYNDROME
     Dosage: 1 AT NIGHT FOR RLS AT BEDTIME TAKEN UNDER THE TONGUE
     Route: 060
     Dates: start: 20140901, end: 20140906

REACTIONS (7)
  - Feeling abnormal [None]
  - Activities of daily living impaired [None]
  - Thinking abnormal [None]
  - Insomnia [None]
  - Haematemesis [None]
  - Aphagia [None]
  - Suicidal ideation [None]

NARRATIVE: CASE EVENT DATE: 20140901
